FAERS Safety Report 10734110 (Version 2)
Quarter: 2015Q3

REPORT INFORMATION
  Report Type: Spontaneous
  Country: US (occurrence: US)
  Receive Date: 20150123
  Receipt Date: 20150903
  Transmission Date: 20151125
  Serious: Yes (Other)
  Sender: FDA-Public Use
  Company Number: US-GLAXOSMITHKLINE-US2015GSK007788

PATIENT
  Sex: Female

DRUGS (1)
  1. VENTOLIN HFA [Suspect]
     Active Substance: ALBUTEROL SULFATE
     Indication: PRODUCT USED FOR UNKNOWN INDICATION

REACTIONS (2)
  - Systemic lupus erythematosus [Unknown]
  - Malaise [Not Recovered/Not Resolved]
